FAERS Safety Report 7418866-X (Version None)
Quarter: 2011Q2

REPORT INFORMATION
  Report Type: 
  Country: None (occurrence: None)
  Receive Date: 20110415
  Receipt Date: 20110411
  Transmission Date: 20111010
  Serious: No
  Sender: FDA-Public Use
  Company Number: US-PFIZER INC-2011079616

PATIENT
  Sex: Female
  Weight: 107 kg

DRUGS (3)
  1. PRISTIQ [Suspect]
     Dosage: UNK
  2. DARIFENACIN [Concomitant]
     Indication: INCONTINENCE
     Dosage: 15 MG, UNK
  3. PRISTIQ [Suspect]
     Indication: DEPRESSION
     Dosage: 50 MG, 1X/DAY
     Route: 048
     Dates: start: 20090101

REACTIONS (5)
  - DISORIENTATION [None]
  - FEELING ABNORMAL [None]
  - DRUG ADMINISTRATION ERROR [None]
  - DIZZINESS [None]
  - HEADACHE [None]
